FAERS Safety Report 4293989-5 (Version None)
Quarter: 2004Q1

REPORT INFORMATION
  Report Type: 
  Country: None (occurrence: None)
  Receive Date: 20040211
  Receipt Date: 20040123
  Transmission Date: 20041129
  Serious: Yes (Hospitalization)
  Sender: FDA-Public Use
  Company Number: DE_040112838

PATIENT
  Age: 59 Year
  Sex: Male
  Weight: 90 kg

DRUGS (2)
  1. HUMALOG [Suspect]
     Indication: DIABETES MELLITUS NON-INSULIN-DEPENDENT
     Dosage: 25 IU/DAY
     Dates: start: 19980101
  2. INSULIN PROTAPHAN HUMAN (INSULIN HUMAN INJECTION, ISOPHANE) [Concomitant]

REACTIONS (2)
  - COMA [None]
  - SHOCK HYPOGLYCAEMIC [None]
